FAERS Safety Report 7486141-3 (Version None)
Quarter: 2011Q2

REPORT INFORMATION
  Report Type: 
  Country: None (occurrence: None)
  Receive Date: 20110517
  Receipt Date: 20110513
  Transmission Date: 20111010
  Serious: Yes (Hospitalization)
  Sender: FDA-Public Use
  Company Number: VE-PFIZER INC-2011096873

PATIENT
  Age: 70 Year
  Sex: Female

DRUGS (2)
  1. APROVEL [Concomitant]
     Indication: HYPERTENSION
     Dosage: 150 MG, 1X/DAY
     Route: 048
  2. LIPITOR [Suspect]
     Indication: HYPERCHOLESTEROLAEMIA
     Dosage: 40 MG, 1X/DAY
     Route: 048

REACTIONS (2)
  - DEVICE RELATED INFECTION [None]
  - BLOOD CREATININE INCREASED [None]
